FAERS Safety Report 24178263 (Version 4)
Quarter: 2024Q4

REPORT INFORMATION
  Report Type: Spontaneous
  Country: US (occurrence: US)
  Receive Date: 20240806
  Receipt Date: 20241204
  Transmission Date: 20250115
  Serious: No
  Sender: PFIZER
  Company Number: US-PFIZER INC-202400226476

PATIENT
  Age: 14 Year
  Sex: Male

DRUGS (1)
  1. GENOTROPIN [Suspect]
     Active Substance: SOMATROPIN
     Dosage: 2 MG, DAILY 6 DAYS A WEEK
     Route: 058
     Dates: start: 202405

REACTIONS (4)
  - Wrong technique in device usage process [Unknown]
  - Device issue [Unknown]
  - Device physical property issue [Unknown]
  - Device leakage [Unknown]
